FAERS Safety Report 11077633 (Version 2)
Quarter: 2015Q2

REPORT INFORMATION
  Report Type: Spontaneous
  Country: US (occurrence: US)
  Receive Date: 20150430
  Receipt Date: 20150506
  Transmission Date: 20150821
  Serious: Yes (Life-Threatening, Hospitalization, Other)
  Sender: FDA-Public Use
  Company Number: PHHY2015US033945

PATIENT
  Age: 32 Year
  Sex: Male

DRUGS (8)
  1. BACLOFEN. [Suspect]
     Active Substance: BACLOFEN
     Indication: PRODUCT USED FOR UNKNOWN INDICATION
     Dosage: 10 MG, TID
     Route: 048
  2. LIORESAL [Suspect]
     Active Substance: BACLOFEN
     Dosage: MINIMUM RATE MODE
     Route: 037
  3. LIORESAL [Suspect]
     Active Substance: BACLOFEN
     Dosage: 200 UG, QD
     Route: 037
  4. LIORESAL [Suspect]
     Active Substance: BACLOFEN
     Dosage: BOLUS DOSE OF 398 MCG
     Route: 037
  5. PROTONIX [Suspect]
     Active Substance: PANTOPRAZOLE SODIUM
     Indication: PRODUCT USED FOR UNKNOWN INDICATION
     Route: 048
  6. DOXYCYCLINE. [Suspect]
     Active Substance: DOXYCYCLINE
     Indication: PRODUCT USED FOR UNKNOWN INDICATION
     Route: 065
  7. LIORESAL [Suspect]
     Active Substance: BACLOFEN
     Indication: MUSCLE SPASTICITY
     Dosage: MMINIMUM DOSE RATE
     Route: 037
  8. LIORESAL [Suspect]
     Active Substance: BACLOFEN
     Dosage: 240 UG, QD
     Route: 037

REACTIONS (11)
  - Postoperative wound infection [Recovering/Resolving]
  - Implant site infection [Recovering/Resolving]
  - Overdose [Recovered/Resolved]
  - Implant site erythema [Recovering/Resolving]
  - Implant site discharge [Recovering/Resolving]
  - Pyrexia [Recovering/Resolving]
  - Wound dehiscence [Recovering/Resolving]
  - Coma [Recovered/Resolved]
  - Therapeutic response decreased [Recovering/Resolving]
  - Pseudomonas test positive [Recovering/Resolving]
  - Incorrect dose administered [Recovered/Resolved]

NARRATIVE: CASE EVENT DATE: 20150313
